FAERS Safety Report 16418341 (Version 1)
Quarter: 2019Q2

REPORT INFORMATION
  Report Type: Report from Study
  Country: US (occurrence: US)
  Receive Date: 20190612
  Receipt Date: 20190612
  Transmission Date: 20190711
  Serious: No
  Sender: FDA-Public Use
  Company Number: US-CELGENEUS-USA-20190511495

PATIENT

DRUGS (1)
  1. OTEZLA [Suspect]
     Active Substance: APREMILAST
     Indication: PSORIASIS
     Route: 048

REACTIONS (6)
  - Psoriasis [Unknown]
  - Helplessness [Unknown]
  - Stress [Unknown]
  - Agitation [Unknown]
  - Drug ineffective [Unknown]
  - Anger [Unknown]
